FAERS Safety Report 9161148 (Version 1)
Quarter: 2013Q1

REPORT INFORMATION
  Report Type: Spontaneous
  Country: US (occurrence: GB)
  Receive Date: 20130313
  Receipt Date: 20130313
  Transmission Date: 20140127
  Serious: Yes (Other)
  Sender: FDA-Public Use
  Company Number: US-MPIJNJ-2013-01934

PATIENT
  Sex: 0

DRUGS (6)
  1. VELCADE [Suspect]
     Indication: ADULT T-CELL LYMPHOMA/LEUKAEMIA
     Dosage: 1 MG/M2, CYCLIC
  2. ETOPOSIDE [Suspect]
     Indication: ADULT T-CELL LYMPHOMA/LEUKAEMIA
  3. PREDNISONE [Suspect]
     Indication: ADULT T-CELL LYMPHOMA/LEUKAEMIA
  4. VINCRISTINE [Suspect]
     Indication: ADULT T-CELL LYMPHOMA/LEUKAEMIA
  5. CYCLOPHOSPHAMIDE [Suspect]
     Indication: ADULT T-CELL LYMPHOMA/LEUKAEMIA
  6. DOXORUBICIN [Suspect]
     Indication: ADULT T-CELL LYMPHOMA/LEUKAEMIA

REACTIONS (3)
  - Bone marrow transplant rejection [Unknown]
  - Cytomegalovirus viraemia [Unknown]
  - Off label use [Unknown]
